FAERS Safety Report 13908276 (Version 1)
Quarter: 2017Q3

REPORT INFORMATION
  Report Type: Other
  Country: GB (occurrence: ES)
  Receive Date: 20170826
  Receipt Date: 20170826
  Transmission Date: 20171127
  Serious: Yes (Disabling, Other)
  Sender: FDA-Public Use
  Company Number: ES-INTERNATIONAL MEDICATION SYSTEMS, LIMITED-2025120

PATIENT
  Age: 69 Year
  Sex: Male

DRUGS (2)
  1. EPINEPHRINE HIGH-DOSE VASOPRESSOR INFUSIONS [Suspect]
     Active Substance: EPINEPHRINE
     Indication: VASOPRESSIVE THERAPY
     Route: 041
  2. NOREPINEPHRINE. [Suspect]
     Active Substance: NOREPINEPHRINE
     Route: 041

REACTIONS (1)
  - Dry gangrene [Recovered/Resolved]
